FAERS Safety Report 11255519 (Version 1)
Quarter: 2015Q3

REPORT INFORMATION
  Report Type: Spontaneous
  Country: US (occurrence: US)
  Receive Date: 20150709
  Receipt Date: 20150709
  Transmission Date: 20151125
  Serious: Yes (Hospitalization)
  Sender: FDA-Public Use
  Company Number: US-MPIJNJ-2012-05857

PATIENT
  Age: 64 Year
  Sex: Female
  Weight: 61.22 kg

DRUGS (3)
  1. DEXAMETHASONE. [Suspect]
     Active Substance: DEXAMETHASONE
     Indication: PLASMA CELL MYELOMA
     Dosage: 40 MG, CYCLIC
     Route: 048
     Dates: start: 20111202, end: 20120813
  2. VELCADE [Suspect]
     Active Substance: BORTEZOMIB
     Indication: PLASMA CELL MYELOMA
     Dosage: 2.3 MG, CYCLIC
     Route: 058
     Dates: start: 20111202, end: 20120424
  3. VELCADE [Suspect]
     Active Substance: BORTEZOMIB
     Dosage: 2.3 MG, CYCLIC
     Route: 042
     Dates: start: 20111202, end: 20120424

REACTIONS (3)
  - Pancytopenia [Unknown]
  - Plasma cell myeloma [Unknown]
  - Streptococcal bacteraemia [Unknown]

NARRATIVE: CASE EVENT DATE: 20120608
